FAERS Safety Report 8816414 (Version 1)
Quarter: 2012Q4

REPORT INFORMATION
  Report Type: Spontaneous
  Country: US (occurrence: None)
  Receive Date: 20120928
  Receipt Date: 20120928
  Transmission Date: 20130627
  Serious: Yes (Hospitalization)
  Sender: FDA-Public Use
  Company Number: None

PATIENT
  Age: 76 Year
  Sex: Female

DRUGS (1)
  1. ADENURIC [Suspect]
     Indication: URIC ACID INCREASED
     Route: 048
     Dates: start: 20111020, end: 20111025

REACTIONS (4)
  - Pruritus [None]
  - General physical health deterioration [None]
  - Jaundice [None]
  - Blood cholinesterase decreased [None]
